FAERS Safety Report 8598342-1 (Version None)
Quarter: 2012Q3

REPORT INFORMATION
  Report Type: 
  Country: None (occurrence: None)
  Receive Date: 20120816
  Receipt Date: 20120810
  Transmission Date: 20120928
  Serious: Yes (Death, Other)
  Sender: FDA-Public Use
  Company Number: JP-ELI_LILLY_AND_COMPANY-JP201208000468

PATIENT
  Sex: Male
  Weight: 86 kg

DRUGS (5)
  1. GRANISETRON [Concomitant]
     Indication: PROPHYLAXIS OF NAUSEA AND VOMITING
     Dosage: 3 MG, UNK
     Route: 042
     Dates: start: 20110830
  2. ALIMTA [Suspect]
     Indication: LUNG ADENOCARCINOMA STAGE IV
     Dosage: 300 MG, UNK
     Route: 042
     Dates: start: 20110830
  3. PANVITAN [Concomitant]
     Dosage: 1 G, UNK
     Route: 048
     Dates: start: 20110830
  4. VITAMIN B12 [Concomitant]
     Dosage: 1 MG, UNK
     Route: 030
     Dates: start: 20110809
  5. DEXAMETHASONE SODIUM PHOSPHATE [Concomitant]
     Indication: PROPHYLAXIS OF NAUSEA AND VOMITING
     Dosage: 6.6 MG, UNK
     Route: 042
     Dates: start: 20110830

REACTIONS (6)
  - PRURITUS [None]
  - CONDITION AGGRAVATED [None]
  - HYPOPHAGIA [None]
  - FEBRILE NEUTROPENIA [None]
  - NEOPLASM MALIGNANT [None]
  - BONE MARROW FAILURE [None]
